FAERS Safety Report 18594789 (Version 1)
Quarter: 2020Q4

REPORT INFORMATION
  Report Type: Spontaneous
  Country: CN (occurrence: CN)
  Receive Date: 20201209
  Receipt Date: 20201209
  Transmission Date: 20210114
  Serious: Yes (Other)
  Sender: FDA-Public Use
  Company Number: CN-PFIZER INC-2020477370

PATIENT
  Age: 28 Year
  Sex: Male
  Weight: 57.7 kg

DRUGS (1)
  1. CYTOSAR [Suspect]
     Active Substance: CYTARABINE
     Indication: LEUKAEMIA
     Dosage: 100 MG, 2X/DAY
     Route: 041
     Dates: start: 20201120, end: 20201126

REACTIONS (2)
  - Pyrexia [Recovered/Resolved]
  - Chills [Recovering/Resolving]

NARRATIVE: CASE EVENT DATE: 20201126
